FAERS Safety Report 4957620-5 (Version None)
Quarter: 2006Q1

REPORT INFORMATION
  Report Type: 
  Country: None (occurrence: None)
  Receive Date: 20060324
  Receipt Date: 20060313
  Transmission Date: 20060701
  Serious: Yes (Life-Threatening, Hospitalization)
  Sender: FDA-Public Use
  Company Number: 2006BI000016

PATIENT
  Age: 61 Year
  Sex: Female
  Weight: 87.6349 kg

DRUGS (9)
  1. ZEVALIN [Suspect]
     Indication: NON-HODGKIN'S LYMPHOMA
     Dosage: 5 MCI; 1X; IV
     Route: 042
     Dates: start: 20051130, end: 20051130
  2. ZEVALIN [Suspect]
     Indication: NON-HODGKIN'S LYMPHOMA
     Dosage: 32 MCI; 1X; IV
     Route: 042
     Dates: start: 20051207, end: 20051207
  3. RITUXIMAB [Concomitant]
  4. RITUXIMAB [Concomitant]
  5. FLUDARABINE [Concomitant]
  6. RITUXIMAB [Concomitant]
  7. CYTOXAN [Concomitant]
  8. ONCOVIN [Concomitant]
  9. PREDNISONE [Concomitant]

REACTIONS (17)
  - DIVERTICULUM DUODENAL [None]
  - HAEMATOCRIT DECREASED [None]
  - HAEMOGLOBIN DECREASED [None]
  - HEART RATE INCREASED [None]
  - HERPES ZOSTER [None]
  - HYPOAESTHESIA [None]
  - INFLUENZA [None]
  - INJECTION SITE NODULE [None]
  - JOINT SWELLING [None]
  - MASS [None]
  - NEURALGIA [None]
  - PANCYTOPENIA [None]
  - PNEUMONIA [None]
  - PULMONARY EMBOLISM [None]
  - RETROPERITONEAL HAEMORRHAGE [None]
  - SCAN ABDOMEN ABNORMAL [None]
  - THROMBOCYTOPENIA [None]
